FAERS Safety Report 18967995 (Version 1)
Quarter: 2021Q1

REPORT INFORMATION
  Report Type: Spontaneous
  Country: US (occurrence: US)
  Receive Date: 20210304
  Receipt Date: 20210304
  Transmission Date: 20210420
  Serious: No
  Sender: FDA-Public Use
  Company Number: US-JNJFOC-20210302322

PATIENT
  Sex: Female
  Weight: 59.02 kg

DRUGS (1)
  1. IMODIUM A?D [Suspect]
     Active Substance: LOPERAMIDE HYDROCHLORIDE
     Indication: INTESTINAL RESECTION
     Dosage: 1 PILLS TO 3 PILLS DAILY AND TAKING IT SEPARATE HOURS SOMETIMES BEFORE, WITHIN AND AFTER EATING
     Route: 048
     Dates: start: 2014, end: 2019

REACTIONS (2)
  - Product use in unapproved indication [Unknown]
  - Off label use [Unknown]

NARRATIVE: CASE EVENT DATE: 2014
